FAERS Safety Report 6142019-9 (Version None)
Quarter: 2009Q1

REPORT INFORMATION
  Report Type: 
  Country: None (occurrence: None)
  Receive Date: 20090331
  Receipt Date: 20090331
  Transmission Date: 20090719
  Serious: Yes (Hospitalization, Disabling)
  Sender: FDA-Public Use
  Company Number: None

PATIENT
  Sex: Female
  Weight: 81 kg

DRUGS (2)
  1. VAPRISOL [Suspect]
     Indication: HYPONATRAEMIA
     Dosage: 20 MG ONCE IV OVER 30 MINUTES
     Route: 042
     Dates: start: 20090226, end: 20090226
  2. VAPRISOL [Suspect]
     Indication: HYPONATRAEMIA
     Dosage: 20 MG ONCE IV OVER 30 MINUTES
     Route: 042
     Dates: start: 20090227, end: 20090227

REACTIONS (2)
  - DEEP VEIN THROMBOSIS [None]
  - INFUSION SITE PHLEBITIS [None]
